FAERS Safety Report 12561552 (Version 1)
Quarter: 2016Q3

REPORT INFORMATION
  Report Type: Report from Study
  Country: BR (occurrence: BR)
  Receive Date: 20160715
  Receipt Date: 20160715
  Transmission Date: 20161109
  Serious: Yes (Death, Other)
  Sender: FDA-Public Use
  Company Number: BR-GLAXOSMITHKLINE-BR2015GSK088122

PATIENT
  Sex: Female
  Weight: 78 kg

DRUGS (2)
  1. METHOTREXATE. [Suspect]
     Active Substance: METHOTREXATE
     Indication: PRODUCT USED FOR UNKNOWN INDICATION
     Dosage: UNK
  2. BELIMUMAB [Suspect]
     Active Substance: BELIMUMAB
     Indication: SYSTEMIC LUPUS ERYTHEMATOSUS
     Dosage: UNK
     Dates: start: 20150602

REACTIONS (6)
  - Road traffic accident [Fatal]
  - Decreased immune responsiveness [Unknown]
  - Drug effect delayed [Unknown]
  - Sinusitis [Unknown]
  - Urinary tract infection [Unknown]
  - Death [Fatal]
